FAERS Safety Report 4556629-3 (Version None)
Quarter: 2005Q1

REPORT INFORMATION
  Report Type: 
  Country: None (occurrence: None)
  Receive Date: 20050118
  Receipt Date: 20050103
  Transmission Date: 20050727
  Serious: Yes (Disabling, Other)
  Sender: FDA-Public Use
  Company Number: 2005002328

PATIENT
  Sex: Female

DRUGS (7)
  1. NEURONTIN [Suspect]
     Indication: POST HERPETIC NEURALGIA
  2. ALPRAZOLAM [Concomitant]
  3. ANALGESICS [Concomitant]
  4. LOVASTATIN [Concomitant]
  5. METOPROLOL TARTRATE [Concomitant]
  6. LEVOTHYROXINE SODIUM [Concomitant]
  7. LOSARTAN POTASSIUM [Concomitant]

REACTIONS (5)
  - BALANCE DISORDER [None]
  - CONSTIPATION [None]
  - HALLUCINATION [None]
  - INCOHERENT [None]
  - WEIGHT DECREASED [None]
